FAERS Safety Report 9688572 (Version 2)
Quarter: 2014Q1

REPORT INFORMATION
  Report Type: Spontaneous
  Country: US (occurrence: US)
  Receive Date: 20131114
  Receipt Date: 20140130
  Transmission Date: 20141002
  Serious: Yes (Other)
  Sender: FDA-Public Use
  Company Number: US-PFIZER INC-2013324124

PATIENT
  Age: 63 Year
  Sex: Female

DRUGS (13)
  1. XELJANZ [Suspect]
     Indication: RHEUMATOID ARTHRITIS
     Dosage: 5 MG, 2X/DAY
     Route: 048
     Dates: start: 20131025, end: 20131119
  2. SINGULAIR [Concomitant]
     Dosage: UNK
  3. AMBIEN [Concomitant]
     Dosage: UNK
  4. HYDROCODONE [Concomitant]
  5. ARMOUR [Concomitant]
     Dosage: UNK
  6. FLUTICASONE [Concomitant]
     Dosage: UNK
  7. ADVAIR [Concomitant]
     Dosage: UNK
  8. PRILOSEC [Concomitant]
     Dosage: UNK
  9. TOPROL [Concomitant]
     Dosage: UNK
  10. ZYRTEC [Concomitant]
     Dosage: UNK
  11. MULTIVIT [Concomitant]
     Dosage: UNK
  12. SAVELLA [Concomitant]
     Dosage: 50 MG, 2X/DAY
  13. FOSAMAX [Concomitant]
     Dosage: UNK

REACTIONS (3)
  - Rheumatoid arthritis [Unknown]
  - Abdominal discomfort [Recovered/Resolved]
  - Abdominal pain [Unknown]
